FAERS Safety Report 6219149-6 (Version None)
Quarter: 2009Q2

REPORT INFORMATION
  Report Type: 
  Country: None (occurrence: None)
  Receive Date: 20090605
  Receipt Date: 20090605
  Transmission Date: 20091009
  Serious: Yes (Other)
  Sender: FDA-Public Use
  Company Number: None

PATIENT
  Sex: Female
  Weight: 62.5964 kg

DRUGS (1)
  1. TOPIRAMATE [Suspect]
     Indication: MIGRAINE
     Dosage: 200 MG BID PO
     Route: 048
     Dates: start: 20090420, end: 20090511

REACTIONS (5)
  - CONDITION AGGRAVATED [None]
  - DIZZINESS [None]
  - DRUG INTOLERANCE [None]
  - HEADACHE [None]
  - PRODUCT SUBSTITUTION ISSUE [None]
